FAERS Safety Report 9008432 (Version 2)
Quarter: 2013Q1

REPORT INFORMATION
  Report Type: Report from Study
  Country: GB (occurrence: GB)
  Receive Date: 20130111
  Receipt Date: 20130213
  Transmission Date: 20140127
  Serious: Yes (Hospitalization)
  Sender: FDA-Public Use
  Company Number: GB-SANOFI-AVENTIS-2013SA001556

PATIENT
  Age: 71 Year
  Sex: Male
  Weight: 62.6 kg

DRUGS (13)
  1. CLEXANE [Suspect]
     Indication: PRODUCT USED FOR UNKNOWN INDICATION
     Route: 065
     Dates: start: 20081215
  2. BEVACIZUMAB [Suspect]
     Indication: GASTRIC CANCER
     Route: 042
     Dates: start: 20081016, end: 20090415
  3. BEVACIZUMAB [Suspect]
     Indication: GASTRIC CANCER
     Route: 042
     Dates: start: 20081016, end: 20090415
  4. CISPLATIN [Suspect]
     Indication: GASTRIC CANCER
     Route: 042
     Dates: start: 20081016, end: 20090126
  5. CAPECITABINE [Suspect]
     Indication: GASTRIC CANCER
     Dosage: FOR DAY1 TO DAY 14
     Route: 048
     Dates: start: 20081016, end: 20090209
  6. OMEPRAZOLE [Concomitant]
     Dates: start: 20081116, end: 20090414
  7. SIMVASTATIN [Concomitant]
     Dates: start: 2002, end: 20090419
  8. METFORMIN [Concomitant]
     Dates: start: 2002, end: 20090415
  9. METOCLOPRAMIDE [Concomitant]
     Dates: start: 20090330, end: 20090415
  10. DEXAMETHASONE [Concomitant]
     Dates: start: 20090330, end: 20090415
  11. PIOGLITAZONE [Concomitant]
     Dates: start: 2002, end: 20090415
  12. RAMIPRIL [Concomitant]
     Dates: start: 2002, end: 20090415
  13. ATENOLOL [Concomitant]
     Dates: start: 2002, end: 20090415

REACTIONS (2)
  - Gastric perforation [Recovered/Resolved]
  - Abdominal pain [Recovered/Resolved]
